FAERS Safety Report 14984579 (Version 1)
Quarter: 2018Q2

REPORT INFORMATION
  Report Type: Spontaneous
  Country: TR (occurrence: TR)
  Receive Date: 20180607
  Receipt Date: 20180607
  Transmission Date: 20180711
  Serious: Yes (Other)
  Sender: FDA-Public Use
  Company Number: TR-UCBSA-2018024665

PATIENT
  Age: 30 Year
  Sex: Male

DRUGS (4)
  1. BENVIDA [Suspect]
     Active Substance: LACOSAMIDE
     Indication: EPILEPSY
     Dosage: UNK
     Route: 048
     Dates: start: 201804, end: 201805
  2. LEVETIRACETAM. [Suspect]
     Active Substance: LEVETIRACETAM
     Indication: PRODUCT USED FOR UNKNOWN INDICATION
     Dosage: DAILY DOSE OF 3000 MG
  3. VALPROIC ACID. [Concomitant]
     Active Substance: VALPROIC ACID
     Indication: PRODUCT USED FOR UNKNOWN INDICATION
     Dosage: DAILY DOSE OF 1000 MG
  4. CORTISOL [Concomitant]
     Active Substance: HYDROCORTISONE
     Indication: HYPOPITUITARISM
     Dosage: LOW DOSES

REACTIONS (2)
  - Oedema peripheral [Unknown]
  - Seizure [Unknown]

NARRATIVE: CASE EVENT DATE: 201804
